FAERS Safety Report 4685948-5 (Version None)
Quarter: 2005Q2

REPORT INFORMATION
  Report Type: 
  Country: None (occurrence: None)
  Receive Date: 20050607
  Receipt Date: 20050607
  Transmission Date: 20051028
  Serious: No
  Sender: FDA-Public Use
  Company Number: None

PATIENT
  Sex: Male
  Weight: 98.18 kg

DRUGS (5)
  1. CAPECITABINE [Suspect]
     Indication: RECTAL CANCER
     Dosage: ORAL 825 MG/M2 EVERY 12 HOURS, SEVEN DAYS A WEEK DURING XRT
     Route: 048
     Dates: start: 20041207
  2. OXALIPLATIN [Suspect]
     Dosage: IV 60 MG/M2 ON DAYS 1, 8, 15, 22 AND 29
     Route: 042
  3. LEUCOVORIN [Suspect]
     Dosage: IV 400 MG/M2 ON DA1, EVERY 14 DAYS; IV
     Route: 042
  4. FLUOROURACIL [Suspect]
     Dosage: IV BOLUS 400 MG/M2 ON DAY 1, EVERY 14 DAYS
  5. RADIATION [Suspect]
     Dosage: POST-OP CHEMO FOLFOX X 9 CYCLES

REACTIONS (6)
  - ABDOMINAL PAIN [None]
  - ABSCESS [None]
  - FLUID RETENTION [None]
  - NAUSEA [None]
  - PYREXIA [None]
  - VOMITING [None]
